FAERS Safety Report 9615667 (Version 1)
Quarter: 2013Q4

REPORT INFORMATION
  Report Type: Spontaneous
  Country: US (occurrence: US)
  Receive Date: 20131011
  Receipt Date: 20131011
  Transmission Date: 20140711
  Serious: No
  Sender: FDA-Public Use
  Company Number: US-PURDUE-USA-2013-0099451

PATIENT
  Sex: Female
  Weight: 45.35 kg

DRUGS (2)
  1. BUTRANS [Suspect]
     Indication: PAIN
     Dosage: 20 MCG/HR, UNK
     Route: 062
     Dates: start: 2011
  2. BUTRANS [Suspect]
     Dosage: 20 MCG/HR [TWO 10MCG/HR PATCHES AT ONCE], WEEKLY
     Route: 062

REACTIONS (2)
  - Extra dose administered [Not Recovered/Not Resolved]
  - Product adhesion issue [Recovered/Resolved]
